FAERS Safety Report 15583734 (Version 1)
Quarter: 2018Q4

REPORT INFORMATION
  Report Type: Spontaneous
  Country: US (occurrence: US)
  Receive Date: 20181105
  Receipt Date: 20181105
  Transmission Date: 20190205
  Serious: Yes (Other)
  Sender: FDA-Public Use
  Company Number: US-TEVA-2018-US-971076

PATIENT
  Sex: Male

DRUGS (2)
  1. PREDNISONE. [Suspect]
     Active Substance: PREDNISONE
  2. PREDNISONE. [Suspect]
     Active Substance: PREDNISONE
     Indication: PAIN MANAGEMENT

REACTIONS (5)
  - Confusional state [Unknown]
  - Penis disorder [Unknown]
  - Feeling abnormal [Unknown]
  - Pulmonary mass [Unknown]
  - Pneumonia [Unknown]
